FAERS Safety Report 5132918-9 (Version None)
Quarter: 2006Q4

REPORT INFORMATION
  Report Type: 
  Country: None (occurrence: None)
  Receive Date: 20061023
  Receipt Date: 20061009
  Transmission Date: 20070319
  Serious: Yes (Other)
  Sender: FDA-Public Use
  Company Number: GB-JNJFOC-20061004285

PATIENT
  Age: 73 Year
  Sex: Female
  Weight: 95.4 kg

DRUGS (12)
  1. TRAMADOL HCL [Suspect]
     Indication: OSTEOARTHRITIS
     Route: 048
  2. ACARBOSE [Concomitant]
     Route: 048
  3. ASPIRIN [Concomitant]
     Route: 048
  4. ATENOLOL [Concomitant]
     Route: 048
  5. ATORVASTATIN CALCIUM [Concomitant]
     Route: 048
  6. BENDROFLUMETHIAZIDE [Concomitant]
     Route: 048
  7. BEZAFIBRATE [Concomitant]
     Route: 048
  8. DIHYDROCODEINE BITARTRATE INJ [Concomitant]
     Route: 048
  9. GAVISCON [Concomitant]
     Route: 065
  10. METFORMIN HCL [Concomitant]
     Route: 048
  11. MIXTARD PORK [Concomitant]
     Route: 065
  12. NICORANDIL [Concomitant]
     Route: 048

REACTIONS (1)
  - HYPOGLYCAEMIA [None]
